FAERS Safety Report 5836022-3 (Version None)
Quarter: 2008Q3

REPORT INFORMATION
  Report Type: 
  Country: None (occurrence: None)
  Receive Date: 20080806
  Receipt Date: 20080730
  Transmission Date: 20090109
  Serious: Yes (Hospitalization)
  Sender: FDA-Public Use
  Company Number: DE-PFIZER INC-2008061199

PATIENT
  Sex: Female
  Weight: 67 kg

DRUGS (3)
  1. ZELDOX (CAPSULES) [Suspect]
     Indication: PERSECUTORY DELUSION
     Dosage: DAILY DOSE:160MG
     Route: 048
  2. ZELDOX (CAPSULES) [Suspect]
     Indication: HALLUCINATION, AUDITORY
  3. EUNERPAN [Concomitant]
     Route: 048
     Dates: start: 20080616, end: 20080630

REACTIONS (2)
  - AKATHISIA [None]
  - DYSAESTHESIA [None]
